FAERS Safety Report 15170972 (Version 5)
Quarter: 2019Q1

REPORT INFORMATION
  Report Type: Spontaneous
  Country: US (occurrence: US)
  Receive Date: 20180720
  Receipt Date: 20190308
  Transmission Date: 20190417
  Serious: Yes (Other)
  Sender: FDA-Public Use
  Company Number: US-SA-2018SA197182

PATIENT
  Age: 19 Year
  Sex: Female

DRUGS (5)
  1. DUPIXENT [Suspect]
     Active Substance: DUPILUMAB
     Indication: DERMATITIS
     Dosage: 300 MG, QOW
     Route: 058
  2. GABAPENTIN. [Concomitant]
     Active Substance: GABAPENTIN
  3. PREDNISONE. [Concomitant]
     Active Substance: PREDNISONE
  4. DUPIXENT [Suspect]
     Active Substance: DUPILUMAB
     Indication: DERMATITIS ATOPIC
     Dosage: 600 MG, 1X
     Route: 058
     Dates: start: 20180628, end: 20180628
  5. CLOBETASOL [Concomitant]
     Active Substance: CLOBETASOL

REACTIONS (7)
  - Nausea [Recovered/Resolved]
  - Cataract [Unknown]
  - Vision blurred [Unknown]
  - Dizziness [Not Recovered/Not Resolved]
  - Dermatitis atopic [Not Recovered/Not Resolved]
  - Depression [Not Recovered/Not Resolved]
  - Feeling abnormal [Not Recovered/Not Resolved]

NARRATIVE: CASE EVENT DATE: 20180628
